FAERS Safety Report 5496709-1 (Version None)
Quarter: 2007Q4

REPORT INFORMATION
  Report Type: 
  Country: None (occurrence: None)
  Receive Date: 20071025
  Receipt Date: 20070706
  Transmission Date: 20080405
  Serious: Yes (Other)
  Sender: FDA-Public Use
  Company Number: A0662209A

PATIENT
  Age: 73 Year
  Sex: Male

DRUGS (4)
  1. ADVAIR DISKUS 100/50 [Suspect]
     Indication: ASTHMA
     Dosage: 2PUFF TWICE PER DAY
     Route: 055
     Dates: start: 20060106, end: 20060901
  2. ALBUTEROL [Concomitant]
  3. FLONASE [Concomitant]
  4. OMEPRAZOLE [Concomitant]

REACTIONS (5)
  - CHEST PAIN [None]
  - LUNG INFECTION [None]
  - PLEURITIC PAIN [None]
  - PNEUMONIA [None]
  - RASH GENERALISED [None]
